FAERS Safety Report 14205751 (Version 6)
Quarter: 2018Q3

REPORT INFORMATION
  Report Type: Report from Study
  Country: CA (occurrence: CA)
  Receive Date: 20171120
  Receipt Date: 20180807
  Transmission Date: 20181010
  Serious: Yes (Other)
  Sender: FDA-Public Use
  Company Number: CA-PFIZER INC-2017498901

PATIENT
  Age: 68 Year
  Sex: Male

DRUGS (6)
  1. ENTOCORT [Concomitant]
     Active Substance: BUDESONIDE
     Dosage: UNK
  2. ENTYVIO [Suspect]
     Active Substance: VEDOLIZUMAB
     Dosage: 300 MG, EVERY 6 WEEKS
     Route: 042
     Dates: start: 20170516
  3. PANTOLOC [Suspect]
     Active Substance: PANTOPRAZOLE SODIUM
     Dosage: 40 MG, 1X/DAY
     Route: 048
  4. ENTYVIO [Suspect]
     Active Substance: VEDOLIZUMAB
     Indication: CROHN^S DISEASE
     Dosage: 300 MG, UNK
     Route: 042
     Dates: start: 20150728
  5. NOVORAPID [Concomitant]
     Active Substance: INSULIN ASPART
     Dosage: 22 IU, UNK
     Dates: start: 20080130
  6. LEVEMIR [Concomitant]
     Active Substance: INSULIN DETEMIR
     Dosage: 64 IU, UNK
     Dates: start: 20080130

REACTIONS (6)
  - Cellulitis [Recovering/Resolving]
  - Skin disorder [Unknown]
  - Abscess limb [Unknown]
  - Carpal tunnel syndrome [Unknown]
  - Decreased immune responsiveness [Unknown]
  - Cyst [Not Recovered/Not Resolved]

NARRATIVE: CASE EVENT DATE: 20180123
